FAERS Safety Report 5338887-0 (Version None)
Quarter: 2007Q2

REPORT INFORMATION
  Report Type: 
  Country: None (occurrence: None)
  Receive Date: 20070530
  Receipt Date: 20070518
  Transmission Date: 20071010
  Serious: Yes (Hospitalization, Other)
  Sender: FDA-Public Use
  Company Number: US-ELI_LILLY_AND_COMPANY-US200704001854

PATIENT
  Age: 85 Year
  Sex: Female
  Weight: 47.619 kg

DRUGS (12)
  1. MULTI-VITAMIN [Concomitant]
  2. DYAZIDE [Concomitant]
  3. GLUCOSAMINE [Concomitant]
  4. COUMADIN [Concomitant]
  5. OXYGEN [Concomitant]
  6. DIFIL G [Concomitant]
  7. ALBUTEROL [Concomitant]
  8. WELLBUTRIN [Concomitant]
  9. LORTAB [Concomitant]
  10. LISINOPRIL [Concomitant]
  11. DUONEB [Concomitant]
  12. FORTEO [Suspect]
     Dosage: 20 UG, DAILY (1/D)
     Dates: start: 20061002

REACTIONS (2)
  - ATRIOVENTRICULAR BLOCK [None]
  - CARDIAC FAILURE CONGESTIVE [None]
